FAERS Safety Report 10917750 (Version 1)
Quarter: 2015Q1

REPORT INFORMATION
  Report Type: Spontaneous
  Country: US (occurrence: US)
  Receive Date: 20150316
  Receipt Date: 20150316
  Transmission Date: 20150721
  Serious: No
  Sender: FDA-Public Use
  Company Number: US-GLAXOSMITHKLINE-US2015026767

PATIENT
  Age: 61 Year
  Sex: Male

DRUGS (2)
  1. NICODERM CQ [Suspect]
     Active Substance: NICOTINE
     Dosage: 21 MG, UNK
     Dates: start: 20150225, end: 20150226
  2. NICODERM CQ [Suspect]
     Active Substance: NICOTINE
     Indication: SMOKING CESSATION THERAPY
     Dosage: 21 MG, UNK

REACTIONS (4)
  - Expired product administered [Unknown]
  - Feeling abnormal [Not Recovered/Not Resolved]
  - Hypertension [Not Recovered/Not Resolved]
  - Dizziness [Not Recovered/Not Resolved]
